FAERS Safety Report 4709281-8 (Version None)
Quarter: 2005Q3

REPORT INFORMATION
  Report Type: 
  Country: None (occurrence: None)
  Receive Date: 20050707
  Receipt Date: 20050707
  Transmission Date: 20060218
  Serious: No
  Sender: FDA-Public Use
  Company Number: None

PATIENT
  Age: 74 Year
  Sex: Female
  Weight: 51.5 kg

DRUGS (1)
  1. FAMOTIDINE [Suspect]
     Indication: GASTROOESOPHAGEAL REFLUX DISEASE
     Dosage: 20 MG   DAILY  INTRAVENOU
     Route: 042
     Dates: start: 20050524, end: 20050607

REACTIONS (1)
  - THROMBOCYTOPENIA [None]
